FAERS Safety Report 24414923 (Version 1)
Quarter: 2024Q4

REPORT INFORMATION
  Report Type: Spontaneous
  Country: US (occurrence: US)
  Receive Date: 20241009
  Receipt Date: 20241009
  Transmission Date: 20250115
  Serious: Yes (Other)
  Sender: TEVA
  Company Number: US-TEVA-VS-3138773

PATIENT
  Sex: Female

DRUGS (5)
  1. CLONAZEPAM [Suspect]
     Active Substance: CLONAZEPAM
     Indication: Meniere^s disease
     Route: 048
  2. CLONAZEPAM [Suspect]
     Active Substance: CLONAZEPAM
     Indication: Meniere^s disease
     Route: 048
  3. CLONAZEPAM [Suspect]
     Active Substance: CLONAZEPAM
     Indication: Meniere^s disease
     Route: 048
  4. CLONAZEPAM [Suspect]
     Active Substance: CLONAZEPAM
     Indication: Meniere^s disease
     Route: 065
  5. CLONAZEPAM [Suspect]
     Active Substance: CLONAZEPAM
     Indication: Meniere^s disease
     Route: 065

REACTIONS (19)
  - Anaphylactic reaction [Not Recovered/Not Resolved]
  - Nausea [Not Recovered/Not Resolved]
  - Product taste abnormal [Unknown]
  - Drug intolerance [Not Recovered/Not Resolved]
  - Hot flush [Not Recovered/Not Resolved]
  - Throat tightness [Not Recovered/Not Resolved]
  - Product use in unapproved indication [Unknown]
  - Hyperhidrosis [Not Recovered/Not Resolved]
  - Swollen tongue [Not Recovered/Not Resolved]
  - Palpitations [Not Recovered/Not Resolved]
  - Nervousness [Not Recovered/Not Resolved]
  - Headache [Unknown]
  - Adverse drug reaction [Unknown]
  - Hypoaesthesia oral [Not Recovered/Not Resolved]
  - Emotional distress [Unknown]
  - Lip swelling [Not Recovered/Not Resolved]
  - Product availability issue [Unknown]
  - Drug hypersensitivity [Not Recovered/Not Resolved]
  - Drug ineffective for unapproved indication [Unknown]
